FAERS Safety Report 9519188 (Version 1)
Quarter: 2013Q3

REPORT INFORMATION
  Report Type: Spontaneous
  Country: US (occurrence: None)
  Receive Date: 20130911
  Receipt Date: 20130911
  Transmission Date: 20140515
  Serious: No
  Sender: FDA-Public Use
  Company Number: None

PATIENT
  Age: 26 Year
  Sex: Male
  Weight: 71.22 kg

DRUGS (1)
  1. DOXYCYCLINE HYCLATE [Suspect]
     Indication: ACNE
     Route: 048
     Dates: start: 20130805, end: 20130819

REACTIONS (7)
  - Anxiety [None]
  - Depression [None]
  - Nausea [None]
  - Decreased appetite [None]
  - Dyspnoea [None]
  - Fatigue [None]
  - Panic attack [None]
